FAERS Safety Report 6654456-4 (Version None)
Quarter: 2010Q1

REPORT INFORMATION
  Report Type: 
  Country: None (occurrence: None)
  Receive Date: 20100326
  Receipt Date: 20100317
  Transmission Date: 20100710
  Serious: Yes (Disabling)
  Sender: FDA-Public Use
  Company Number: GXKR2010GB03169

PATIENT
  Age: 47 Year
  Sex: Female
  Weight: 76.2 kg

DRUGS (6)
  1. SIMVASTATIN [Suspect]
     Indication: HYPERCHOLESTEROLAEMIA
     Dosage: 30 MG, QD
     Route: 048
  2. ZANIDIP [Suspect]
     Indication: HYPERTENSION
     Dosage: 10 MG, QD
     Route: 048
  3. BENDROFLUMETHIAZIDE [Concomitant]
     Indication: HYPERTENSION
     Dosage: 2.5 MG, QD
     Route: 048
     Dates: start: 20040201
  4. GABAPENTIN [Concomitant]
     Indication: PAIN
     Dosage: 900 MG, QD
     Route: 048
     Dates: start: 20070110
  5. PARACETAMOL [Concomitant]
     Indication: HEADACHE
     Dosage: 500 MG, QID
     Route: 048
  6. PARACETAMOL [Concomitant]
     Indication: BACK PAIN

REACTIONS (2)
  - ENURESIS [None]
  - SOMNAMBULISM [None]
